FAERS Safety Report 6960234-9 (Version None)
Quarter: 2010Q3

REPORT INFORMATION
  Report Type: 
  Country: None (occurrence: None)
  Receive Date: 20100901
  Receipt Date: 20100827
  Transmission Date: 20110219
  Serious: Yes (Death)
  Sender: FDA-Public Use
  Company Number: TR-ELI_LILLY_AND_COMPANY-TR201008008010

PATIENT
  Age: 49 Year
  Sex: Male

DRUGS (4)
  1. HUMALOG [Suspect]
     Indication: DIABETES MELLITUS
     Dosage: UNK UNK, 3/D
     Route: 058
     Dates: end: 20100720
  2. LANTUS [Concomitant]
     Indication: DIABETES MELLITUS
     Dosage: 12 U, EACH EVENING
  3. SPIRONOLACTONE [Concomitant]
     Indication: DIURETIC THERAPY
  4. DILTIAZEM HCL [Concomitant]
     Indication: CARDIAC DISORDER

REACTIONS (1)
  - ANTIPHOSPHOLIPID SYNDROME [None]
